FAERS Safety Report 9492061 (Version 3)
Quarter: 2014Q1

REPORT INFORMATION
  Report Type: Spontaneous
  Country: US (occurrence: US)
  Receive Date: 20130830
  Receipt Date: 20140129
  Transmission Date: 20141002
  Serious: Yes (Hospitalization, Disabling, Other)
  Sender: FDA-Public Use
  Company Number: US-009507513-1105USA02549

PATIENT
  Sex: Female

DRUGS (10)
  1. FOSAMAX [Suspect]
     Dosage: 70 MG, QW
     Route: 048
     Dates: start: 20060717, end: 20111017
  2. FOSAMAX [Suspect]
     Indication: OSTEOPOROSIS
     Dosage: 70 MG, QW
     Route: 048
     Dates: start: 200510, end: 20100401
  3. FOSAMAX [Suspect]
     Indication: OSTEOPENIA
     Dosage: UNK
     Dates: start: 20070831, end: 20080114
  4. VITAMINS (UNSPECIFIED) [Concomitant]
     Dates: start: 1970
  5. PROTONIX [Concomitant]
     Dosage: 40 MG, QD
     Route: 048
     Dates: start: 200101
  6. DIOVAN [Concomitant]
     Indication: HYPERTENSION
     Route: 048
  7. CLONIDINE [Concomitant]
     Indication: HYPERTENSION
     Route: 048
  8. HYDROCHLOROTHIAZIDE [Concomitant]
     Indication: HYPERTENSION
     Route: 048
  9. LASIX (FUROSEMIDE SODIUM) [Concomitant]
     Indication: HYPERTENSION
  10. LISINOPRIL [Concomitant]
     Indication: HYPERTENSION

REACTIONS (74)
  - Femur fracture [Recovering/Resolving]
  - Intramedullary rod insertion [Recovering/Resolving]
  - Osteoarthritis [Unknown]
  - Knee arthroplasty [Unknown]
  - Renal artery stenosis [Unknown]
  - Renal artery angioplasty [Unknown]
  - Renal artery stent placement [Unknown]
  - Coronary arterial stent insertion [Unknown]
  - Cerebrovascular accident [Unknown]
  - Transient ischaemic attack [Unknown]
  - Hyponatraemia [Unknown]
  - Deep vein thrombosis [Unknown]
  - Renal failure acute [Unknown]
  - Medical device removal [Not Recovered/Not Resolved]
  - Medical device removal [Unknown]
  - Staphylococcal infection [Unknown]
  - Device related infection [Unknown]
  - Knee arthroplasty [Unknown]
  - Intramedullary rod insertion [Unknown]
  - Device failure [Unknown]
  - Inflammatory marker increased [Unknown]
  - Debridement [Unknown]
  - Aspiration joint [Unknown]
  - Low turnover osteopathy [Not Recovered/Not Resolved]
  - Angiopathy [Unknown]
  - Osteonecrosis [Unknown]
  - Asthenia [Unknown]
  - Diarrhoea [Unknown]
  - Vomiting [Unknown]
  - Depression [Not Recovered/Not Resolved]
  - Anxiety [Not Recovered/Not Resolved]
  - Peptic ulcer [Unknown]
  - Type 2 diabetes mellitus [Unknown]
  - Asthma [Unknown]
  - Tendon disorder [Not Recovered/Not Resolved]
  - Synovial cyst [Unknown]
  - Bone marrow oedema [Unknown]
  - Tendon rupture [Unknown]
  - Tendon disorder [Unknown]
  - Stress fracture [Unknown]
  - Lymphadenopathy [Unknown]
  - Corneal transplant [Unknown]
  - Transient ischaemic attack [Unknown]
  - Sinus disorder [Unknown]
  - Cerebral small vessel ischaemic disease [Not Recovered/Not Resolved]
  - Gout [Unknown]
  - Coronary artery disease [Unknown]
  - Unevaluable event [Unknown]
  - Hypertension [Unknown]
  - Chronic obstructive pulmonary disease [Unknown]
  - Bacteraemia [Unknown]
  - Atrial fibrillation [Unknown]
  - Peripheral vascular disorder [Unknown]
  - Vena cava filter insertion [Unknown]
  - Anaemia postoperative [Recovering/Resolving]
  - Osteomyelitis [Unknown]
  - Presyncope [Recovered/Resolved]
  - Fall [Unknown]
  - QRS axis abnormal [Unknown]
  - Patient-device incompatibility [Unknown]
  - Feeling abnormal [Unknown]
  - Migraine [Unknown]
  - Urinary incontinence [Unknown]
  - Poor quality sleep [Unknown]
  - Insomnia [Unknown]
  - Pruritus [Unknown]
  - Dyspepsia [Unknown]
  - Oedema peripheral [Unknown]
  - Gastrooesophageal reflux disease [Unknown]
  - Constipation [Recovering/Resolving]
  - Nausea [Unknown]
  - Oedema peripheral [Unknown]
  - Pain in extremity [Unknown]
  - Asthenia [Recovering/Resolving]
